FAERS Safety Report 26080558 (Version 1)
Quarter: 2025Q4

REPORT INFORMATION
  Report Type: Spontaneous
  Country: EU (occurrence: EU)
  Receive Date: 20251124
  Receipt Date: 20251124
  Transmission Date: 20260118
  Serious: Yes (Other)
  Sender: ORGANON
  Company Number: None

PATIENT
  Age: 55 Year
  Sex: Male
  Weight: 66 kg

DRUGS (1)
  1. FINASTERIDE [Suspect]
     Active Substance: FINASTERIDE
     Indication: Alopecia
     Dosage: 1 DOSAGE FORM, QD (1 PER DAY)
     Dates: start: 19980926, end: 20230326

REACTIONS (3)
  - Lacunar stroke [Recovered/Resolved]
  - Rectal haemorrhage [Recovered/Resolved]
  - Haematospermia [Recovered/Resolved]

NARRATIVE: CASE EVENT DATE: 20220926
